FAERS Safety Report 6746143-9 (Version None)
Quarter: 2010Q2

REPORT INFORMATION
  Report Type: 
  Country: None (occurrence: None)
  Receive Date: 20100528
  Receipt Date: 20100319
  Transmission Date: 20101027
  Serious: No
  Sender: FDA-Public Use
  Company Number: US-ASTRAZENECA-2010SE12245

PATIENT
  Sex: Female

DRUGS (3)
  1. PRILOSEC [Suspect]
     Indication: GASTROOESOPHAGEAL REFLUX DISEASE
     Route: 048
  2. FOSAMAX [Concomitant]
  3. PREVACID [Concomitant]

REACTIONS (3)
  - ABDOMINAL DISCOMFORT [None]
  - DRUG INEFFECTIVE [None]
  - FOREIGN BODY [None]
